FAERS Safety Report 14243644 (Version 2)
Quarter: 2018Q1

REPORT INFORMATION
  Report Type: Spontaneous
  Country: US (occurrence: US)
  Receive Date: 20171201
  Receipt Date: 20180112
  Transmission Date: 20180508
  Serious: No
  Sender: FDA-Public Use
  Company Number: US-GLAXOSMITHKLINE-US2017183802

PATIENT
  Sex: Female
  Weight: 53.97 kg

DRUGS (1)
  1. VENTOLIN HFA [Suspect]
     Active Substance: ALBUTEROL SULFATE
     Indication: ASTHMA
     Dosage: 1 PUFF(S), PRN
     Route: 055

REACTIONS (2)
  - Wrong technique in device usage process [Unknown]
  - Wrong technique in product usage process [Unknown]
